FAERS Safety Report 9387984 (Version 4)
Quarter: 2013Q3

REPORT INFORMATION
  Report Type: Spontaneous
  Country: US (occurrence: None)
  Receive Date: 20130701
  Receipt Date: 20130814
  Transmission Date: 20140515
  Serious: Yes (Death, Hospitalization)
  Sender: FDA-Public Use
  Company Number: US-JNJFOC-20130611960

PATIENT
  Age: 64 Year
  Sex: Female
  Weight: 56.7 kg

DRUGS (4)
  1. DECITABINE [Suspect]
     Indication: ACUTE MYELOID LEUKAEMIA
     Route: 042
     Dates: start: 20130531, end: 20130604
  2. DAUNORUBICIN [Suspect]
     Indication: ACUTE MYELOID LEUKAEMIA
     Route: 042
     Dates: start: 20130531, end: 20130605
  3. IDARUBICIN [Suspect]
     Indication: ACUTE MYELOID LEUKAEMIA
     Route: 042
     Dates: start: 20130531
  4. CYTARABINE [Suspect]
     Indication: ACUTE MYELOID LEUKAEMIA
     Route: 042
     Dates: start: 20130531, end: 20130611

REACTIONS (16)
  - Respiratory failure [None]
  - Sepsis [None]
  - Multi-organ failure [None]
  - Renal failure acute [None]
  - Continuous haemodiafiltration [None]
  - Ischaemic hepatitis [None]
  - Febrile neutropenia [None]
  - Lobar pneumonia [None]
  - Lung infection [None]
  - Hypotension [None]
  - Acidosis [None]
  - Haemoglobin decreased [None]
  - Haematocrit decreased [None]
  - Peritoneal haemorrhage [None]
  - Retroperitoneal haematoma [None]
  - Haematoma [None]
